FAERS Safety Report 4469206-X (Version None)
Quarter: 2004Q4

REPORT INFORMATION
  Report Type: 
  Country: None (occurrence: None)
  Receive Date: 20041005
  Receipt Date: 20040922
  Transmission Date: 20050328
  Serious: Yes (Hospitalization)
  Sender: FDA-Public Use
  Company Number: 2004230712CA

PATIENT
  Age: 44 Year
  Sex: Female
  Weight: 74.7 kg

DRUGS (3)
  1. IRINOTECAN [Suspect]
     Indication: CERVIX NEOPLASM
     Dosage: 183 MG, CYCLE 1, Q 3 WKS, IV
     Route: 042
     Dates: start: 20040810, end: 20040810
  2. PHARMORUBICIN (EPIRUBICIN HYDROCHLORIDE)             POWER, STERILE [Suspect]
     Indication: CERVIX NEOPLASM
     Dosage: 91 MG, CYCLE 1, Q 3 WKS, IV
     Route: 042
     Dates: start: 20040810, end: 20040810
  3. CISPLATIN [Suspect]
     Indication: CERVIX NEOPLASM
     Dosage: 91.4 MG, CYCLE 1, Q 3 WKS, IV
     Route: 042
     Dates: start: 20040810, end: 20040810

REACTIONS (8)
  - ATELECTASIS [None]
  - CHOLELITHIASIS [None]
  - CYSTITIS [None]
  - DEHYDRATION [None]
  - FEBRILE NEUTROPENIA [None]
  - OEDEMA PERIPHERAL [None]
  - PULMONARY EMBOLISM [None]
  - SMALL INTESTINAL OBSTRUCTION [None]
